FAERS Safety Report 9973388 (Version 3)
Quarter: 2014Q1

REPORT INFORMATION
  Report Type: Spontaneous
  Country: IT (occurrence: IT)
  Receive Date: 20140306
  Receipt Date: 20140319
  Transmission Date: 20141002
  Serious: Yes (Other)
  Sender: FDA-Public Use
  Company Number: IT-JNJFOC-20140300213

PATIENT
  Age: 53 Year
  Sex: Female
  Weight: 62 kg

DRUGS (4)
  1. REMICADE [Suspect]
     Indication: CROHN^S DISEASE
     Route: 042
     Dates: start: 20140224
  2. REMICADE [Suspect]
     Indication: CROHN^S DISEASE
     Route: 042
     Dates: start: 20140210
  3. EUTIROX [Concomitant]
     Indication: HYPOTHYROIDISM
     Route: 048
  4. CONGESCOR [Concomitant]
     Indication: HYPERTENSION
     Route: 048

REACTIONS (5)
  - Dysgeusia [Recovered/Resolved]
  - Larynx irritation [Recovered/Resolved]
  - Infusion related reaction [Recovered/Resolved]
  - Throat irritation [Unknown]
  - Dysphonia [Unknown]
